FAERS Safety Report 5064832-1 (Version None)
Quarter: 2006Q3

REPORT INFORMATION
  Report Type: 
  Country: None (occurrence: None)
  Receive Date: 20060728
  Receipt Date: 20060720
  Transmission Date: 20061208
  Serious: Yes (Other)
  Sender: FDA-Public Use
  Company Number: US-BRISTOL-MYERS SQUIBB COMPANY-13447925

PATIENT
  Age: 33 Year
  Sex: Female

DRUGS (1)
  1. DEFINITY [Suspect]
     Indication: ECHOCARDIOGRAM

REACTIONS (4)
  - DYSPHASIA [None]
  - HYPOAESTHESIA ORAL [None]
  - PHARYNGEAL OEDEMA [None]
  - URTICARIA [None]
